FAERS Safety Report 10485103 (Version 2)
Quarter: 2014Q4

REPORT INFORMATION
  Report Type: Report from Study
  Country: MX (occurrence: MX)
  Receive Date: 20140930
  Receipt Date: 20141014
  Transmission Date: 20150528
  Serious: Yes (Hospitalization, Other)
  Sender: FDA-Public Use
  Company Number: PHHY2014MX127912

PATIENT
  Age: 71 Year
  Sex: Female

DRUGS (3)
  1. DILACORON [Concomitant]
     Indication: HYPERTENSION
     Dosage: 1 DF, DAILY
     Route: 065
  2. LOSEC                                   /CAN/ [Concomitant]
     Indication: GASTRITIS
     Dosage: 1 DF, DAILY
     Route: 065
  3. DIOVAN [Suspect]
     Active Substance: VALSARTAN
     Indication: HYPERTENSION
     Dosage: 160 MG, BID
     Route: 048
     Dates: start: 201102

REACTIONS (10)
  - Fall [Recovered/Resolved]
  - Bradycardia [Unknown]
  - Bronchitis [Recovering/Resolving]
  - Atrial fibrillation [Unknown]
  - Mitral valve incompetence [Unknown]
  - Angina pectoris [Unknown]
  - Wrist fracture [Recovered/Resolved]
  - Spinal column injury [Recovered/Resolved]
  - Joint injury [Recovered/Resolved]
  - Cough [Recovering/Resolving]

NARRATIVE: CASE EVENT DATE: 201309
